FAERS Safety Report 10238101 (Version 1)
Quarter: 2014Q2

REPORT INFORMATION
  Report Type: Spontaneous
  Country: US (occurrence: US)
  Receive Date: 20140616
  Receipt Date: 20140616
  Transmission Date: 20141212
  Serious: Yes (Other)
  Sender: FDA-Public Use
  Company Number: US-JNJFOC-20140603363

PATIENT
  Age: 73 Year
  Sex: Male

DRUGS (1)
  1. VERMOX [Suspect]
     Indication: PRODUCT USED FOR UNKNOWN INDICATION
     Route: 065

REACTIONS (10)
  - Cerebrovascular accident [Unknown]
  - Convulsion [Unknown]
  - Gastrointestinal disorder [Unknown]
  - Pneumonia fungal [Unknown]
  - Infection [Unknown]
  - Visual impairment [Unknown]
  - General physical health deterioration [Unknown]
  - Drug ineffective [Unknown]
  - Vomiting [Unknown]
  - Nausea [Unknown]
